FAERS Safety Report 5696842-5 (Version None)
Quarter: 2008Q2

REPORT INFORMATION
  Report Type: 
  Country: None (occurrence: None)
  Receive Date: 20080408
  Receipt Date: 20061117
  Transmission Date: 20081010
  Serious: No
  Sender: FDA-Public Use
  Company Number: US-BAYER-US-2006-036232

PATIENT
  Age: 32 Year
  Sex: Female
  Weight: 69 kg

DRUGS (2)
  1. YASMIN [Suspect]
     Route: 048
     Dates: start: 20060601
  2. WELLBUTRIN [Concomitant]
     Dosage: UNIT DOSE: 150 MG
     Route: 048

REACTIONS (1)
  - METRORRHAGIA [None]
